FAERS Safety Report 24768227 (Version 1)
Quarter: 2024Q4

REPORT INFORMATION
  Report Type: Spontaneous
  Country: US (occurrence: US)
  Receive Date: 20241223
  Receipt Date: 20241223
  Transmission Date: 20250115
  Serious: Yes (Hospitalization)
  Sender: MERCK
  Company Number: US-009507513-2412USA008092

PATIENT
  Sex: Male

DRUGS (2)
  1. KEYTRUDA [Suspect]
     Active Substance: PEMBROLIZUMAB
  2. INLYTA [Suspect]
     Active Substance: AXITINIB
     Route: 048

REACTIONS (4)
  - Ejection fraction decreased [Unknown]
  - Hypertension [Unknown]
  - Fatigue [Unknown]
  - Dyspnoea [Unknown]
